FAERS Safety Report 10385287 (Version 1)
Quarter: 2014Q3

REPORT INFORMATION
  Report Type: Spontaneous
  Country: US (occurrence: US)
  Receive Date: 20140814
  Receipt Date: 20140814
  Transmission Date: 20150326
  Serious: Yes (Other)
  Sender: FDA-Public Use
  Company Number: US-PFIZER INC-2014223008

PATIENT
  Sex: Female

DRUGS (2)
  1. RAMIPRIL. [Suspect]
     Active Substance: RAMIPRIL
     Indication: BLOOD PRESSURE
     Dosage: UNK
  2. RAMIPRIL. [Suspect]
     Active Substance: RAMIPRIL
     Dosage: UNK (DOSE INCREASED)

REACTIONS (1)
  - Ventricular tachycardia [Unknown]
